FAERS Safety Report 7991038-6 (Version None)
Quarter: 2011Q4

REPORT INFORMATION
  Report Type: 
  Country: None (occurrence: None)
  Receive Date: 20111219
  Receipt Date: 20111216
  Transmission Date: 20120403
  Serious: Yes (Other)
  Sender: FDA-Public Use
  Company Number: US-ROCHE-1021593

PATIENT
  Age: 71 Year
  Sex: Female
  Weight: 39.1 kg

DRUGS (10)
  1. TARCEVA [Suspect]
     Indication: METASTASES TO LUNG
     Dosage: INDICATION: HCC WITH LUNG METS
     Route: 048
     Dates: start: 20110921, end: 20111123
  2. NORVASC [Concomitant]
  3. DIOVAN [Concomitant]
  4. AVASTIN [Suspect]
     Indication: METASTASES TO LUNG
     Dosage: INDICATION: HCC WITH LUNG METS
     Route: 042
     Dates: start: 20110921, end: 20111122
  5. BARACLUDE [Concomitant]
  6. DESOXYMETHASONE [Concomitant]
     Dosage: FREQUENCY: PRN
  7. CALCIUM [Concomitant]
  8. ALIGN PROBIOTIC [Concomitant]
  9. ADVAIR DISKUS 100/50 [Concomitant]
     Dosage: REPORTED AS ADVAIR DISKUS 750-50 MCG
  10. IBUPROFEN (ADVIL) [Concomitant]
     Dosage: FREQUENCY: PRN

REACTIONS (1)
  - HERPES ZOSTER [None]
